FAERS Safety Report 20675617 (Version 1)
Quarter: 2022Q2

REPORT INFORMATION
  Report Type: Spontaneous
  Country: None (occurrence: US)
  Receive Date: 20220405
  Receipt Date: 20220405
  Transmission Date: 20220721
  Serious: No
  Sender: FDA-Public Use
  Company Number: US-B.Braun Medical Inc.-2127415

PATIENT
  Age: 74 Year
  Sex: Female

DRUGS (1)
  1. CLOROTEKAL [Suspect]
     Active Substance: CHLOROPROCAINE HYDROCHLORIDE

REACTIONS (1)
  - Anaesthetic complication [Recovered/Resolved]
